FAERS Safety Report 6328418-0 (Version None)
Quarter: 2009Q3

REPORT INFORMATION
  Report Type: 
  Country: None (occurrence: None)
  Receive Date: 20090825
  Receipt Date: 20090629
  Transmission Date: 20100115
  Serious: No
  Sender: FDA-Public Use
  Company Number: US-ABBOTT-09P-163-0582913-00

PATIENT
  Age: 39 Year
  Sex: Female

DRUGS (1)
  1. SYNTHROID [Suspect]
     Indication: DRUG USE FOR UNKNOWN INDICATION

REACTIONS (5)
  - DEPRESSION [None]
  - HEADACHE [None]
  - LOSS OF LIBIDO [None]
  - PHOTOPHOBIA [None]
  - UNEVALUABLE EVENT [None]
